FAERS Safety Report 23861322 (Version 2)
Quarter: 2025Q2

REPORT INFORMATION
  Report Type: Report from Study
  Country: CA (occurrence: CA)
  Receive Date: 20240516
  Receipt Date: 20250407
  Transmission Date: 20250716
  Serious: Yes (Other)
  Sender: TAKEDA
  Company Number: CA-TAKEDA-2024TUS046430

PATIENT
  Sex: Female

DRUGS (3)
  1. LANADELUMAB [Suspect]
     Active Substance: LANADELUMAB
     Indication: Hereditary angioedema
     Dosage: UNK UNK, Q2WEEKS
     Dates: start: 20230814
  2. FIRAZYR [Suspect]
     Active Substance: ICATIBANT ACETATE
     Indication: Hereditary angioedema
  3. FIRAZYR [Suspect]
     Active Substance: ICATIBANT ACETATE

REACTIONS (8)
  - Respiratory distress [Recovered/Resolved]
  - COVID-19 [Recovered/Resolved]
  - Speech disorder [Recovered/Resolved]
  - Aphonia [Recovered/Resolved]
  - Dysphonia [Recovered/Resolved]
  - Stridor [Recovered/Resolved]
  - Pharyngeal swelling [Recovered/Resolved]
  - Hereditary angioedema [Recovered/Resolved]
